FAERS Safety Report 10717860 (Version 2)
Quarter: 2015Q1

REPORT INFORMATION
  Report Type: Spontaneous
  Country: FR (occurrence: FR)
  Receive Date: 20150116
  Receipt Date: 20150120
  Transmission Date: 20150721
  Serious: Yes (Other)
  Sender: FDA-Public Use
  Company Number: FR-009507513-1501FRA005858

PATIENT
  Age: 15 Year
  Sex: Male

DRUGS (3)
  1. IFOSFAMIDE. [Suspect]
     Active Substance: IFOSFAMIDE
     Indication: EWING^S SARCOMA
     Dosage: 5400 MG, QD
     Route: 042
     Dates: start: 20141009, end: 20141010
  2. EMEND [Suspect]
     Active Substance: APREPITANT
     Dosage: DAY 2: 80 MG/ DAY 3: 80 MG
     Route: 048
     Dates: start: 20141010, end: 20141011
  3. EMEND [Suspect]
     Active Substance: APREPITANT
     Indication: PROPHYLAXIS OF NAUSEA AND VOMITING
     Dosage: DAY 1: 125 MG
     Route: 048
     Dates: start: 20141009, end: 20141009

REACTIONS (1)
  - Encephalopathy [Recovered/Resolved]

NARRATIVE: CASE EVENT DATE: 20141010
